FAERS Safety Report 12368847 (Version 1)
Quarter: 2016Q2

REPORT INFORMATION
  Report Type: Spontaneous
  Country: DE (occurrence: DE)
  Receive Date: 20160513
  Receipt Date: 20160513
  Transmission Date: 20160815
  Serious: Yes (Hospitalization)
  Sender: FDA-Public Use
  Company Number: DE-PFIZER INC-DEWYE294202APR07

PATIENT
  Age: 63 Year
  Sex: Male

DRUGS (3)
  1. AMLODIPINE BESILATE [Suspect]
     Active Substance: AMLODIPINE BESYLATE
     Dosage: 100 TABLETS (OVERDOSE AMOUNT 1000MG)
     Route: 048
     Dates: start: 20070330, end: 20070330
  2. TAVOR (LORAZEPAM) [Suspect]
     Active Substance: LORAZEPAM
     Dosage: 50 TABLETS(OVERDOSE AMOUNT 50MG)
     Route: 048
     Dates: start: 20070330, end: 20070330
  3. SONATA [Suspect]
     Active Substance: ZALEPLON
     Dosage: 14 CAPSULES(OVERDOSE AMOUNT 140MG)
     Route: 048
     Dates: start: 20070330, end: 20070330

REACTIONS (5)
  - Hypotension [Unknown]
  - Suicide attempt [Unknown]
  - Fatigue [Unknown]
  - Tachycardia [Unknown]
  - Intentional overdose [Unknown]

NARRATIVE: CASE EVENT DATE: 20070330
